FAERS Safety Report 6756967-X (Version None)
Quarter: 2010Q2

REPORT INFORMATION
  Report Type: 
  Country: None (occurrence: None)
  Receive Date: 20100603
  Receipt Date: 20100603
  Transmission Date: 20101027
  Serious: Yes (Hospitalization)
  Sender: FDA-Public Use
  Company Number: None

PATIENT
  Age: 87 Year
  Sex: Male
  Weight: 121.2 kg

DRUGS (2)
  1. SIMVASTATIN [Suspect]
     Indication: CORONARY ARTERY DISEASE
     Dosage: 80 MG AT BEDTIME PO
     Route: 048
     Dates: start: 20021016, end: 20091107
  2. SIMVASTATIN [Suspect]
     Indication: HYPERLIPIDAEMIA
     Dosage: 80 MG AT BEDTIME PO
     Route: 048
     Dates: start: 20021016, end: 20091107

REACTIONS (5)
  - BLOOD CREATININE INCREASED [None]
  - BLOOD URINE PRESENT [None]
  - FALL [None]
  - INJURY [None]
  - RHABDOMYOLYSIS [None]
